FAERS Safety Report 7698820-3 (Version None)
Quarter: 2011Q3

REPORT INFORMATION
  Report Type: 
  Country: None (occurrence: None)
  Receive Date: 20110819
  Receipt Date: 20110812
  Transmission Date: 20111222
  Serious: Yes (Other)
  Sender: FDA-Public Use
  Company Number: US-PFIZER INC-2011186895

PATIENT
  Age: 36 Year
  Sex: Male

DRUGS (10)
  1. LAMOTRIGINE [Suspect]
     Indication: HALLUCINATION, AUDITORY
     Dosage: 200 MG AT BEDTIME
  2. THIOTHIXENE HCL [Suspect]
     Dosage: 40 MG/DAY
  3. OLANZAPINE [Suspect]
     Indication: HALLUCINATION, AUDITORY
     Dosage: 40 MG AT BEDTIME
  4. HALOPERIDOL [Suspect]
     Indication: HALLUCINATION, AUDITORY
     Dosage: 80 MG/DAY
  5. THIOTHIXENE HCL [Suspect]
     Indication: HALLUCINATION, AUDITORY
     Dosage: 80 MG/DAY
  6. THIOTHIXENE HCL [Suspect]
     Dosage: 40 MG WITH DINNER
  7. RISPERIDONE [Suspect]
     Indication: HALLUCINATION, AUDITORY
     Dosage: 6 MG/DAY
  8. OLANZAPINE [Suspect]
     Dosage: 40 MG/DAY
  9. ZIPRASIDONE HCL [Suspect]
     Indication: HALLUCINATION, AUDITORY
     Dosage: 160 MG WITH DINNER
  10. FLUPHENAZINE [Suspect]
     Indication: HALLUCINATION, AUDITORY
     Dosage: 80 MG/DAY

REACTIONS (4)
  - HYPERGLYCAEMIA [None]
  - HYPERCHOLESTEROLAEMIA [None]
  - DRUG INEFFECTIVE [None]
  - SELF INJURIOUS BEHAVIOUR [None]
